FAERS Safety Report 18752790 (Version 1)
Quarter: 2021Q1

REPORT INFORMATION
  Report Type: Spontaneous
  Country: CA (occurrence: CA)
  Receive Date: 20210118
  Receipt Date: 20210118
  Transmission Date: 20210419
  Serious: Yes (Hospitalization, Other)
  Sender: FDA-Public Use
  Company Number: CA-AMGEN-CANSP2021004549

PATIENT
  Age: 58 Year
  Sex: Female

DRUGS (10)
  1. IGG [Concomitant]
     Active Substance: HUMAN IMMUNOGLOBULIN G
     Indication: HYPOGAMMAGLOBULINAEMIA
     Dosage: THREE TIMES AT 4 WEEK INTERVALS
     Dates: start: 20200101
  2. VALGANCICLOVIR. [Concomitant]
     Active Substance: VALGANCICLOVIR
     Dosage: 450 MILLIGRAM, QD
     Route: 048
     Dates: start: 20200201
  3. PROBENECID. [Concomitant]
     Active Substance: PROBENECID
     Dosage: 2 GRAM 2 HOURS AFTER CIDOFOVIR
     Route: 048
  4. FILGRASTIM [Suspect]
     Active Substance: FILGRASTIM
     Indication: NEUTROPENIA
     Dosage: UNK
     Route: 065
     Dates: start: 20200101
  5. CIDOFOVIR. [Concomitant]
     Active Substance: CIDOFOVIR
     Indication: VIRAL INFECTION
     Dosage: 1 MILLIGRAM/KILOGRAM, 3 TIMES/WK
     Route: 042
     Dates: start: 20200101
  6. PROBENECID. [Concomitant]
     Active Substance: PROBENECID
     Dosage: 2 GRAM 8 HOURS AFTER CIDOFOVIR
     Route: 048
  7. MEROPENEM. [Concomitant]
     Active Substance: MEROPENEM
  8. GANCICLOVIR. [Concomitant]
     Active Substance: GANCICLOVIR
     Dosage: 250 MILLIGRAM, BID
     Route: 042
     Dates: start: 20200123
  9. DARBEPOETIN ALFA [Suspect]
     Active Substance: DARBEPOETIN ALFA
     Indication: ANAEMIA
     Dosage: UNK
     Route: 065
     Dates: start: 20200101
  10. PROBENECID. [Concomitant]
     Active Substance: PROBENECID
     Dosage: 2 GRAM 1 HOUR BEFORE CIDOFOVIR
     Route: 048

REACTIONS (2)
  - Neutropenia [Recovered/Resolved]
  - Cytomegalovirus infection [Recovered/Resolved]

NARRATIVE: CASE EVENT DATE: 202001
